FAERS Safety Report 6496977-3 (Version None)
Quarter: 2009Q4

REPORT INFORMATION
  Report Type: 
  Country: None (occurrence: None)
  Receive Date: 20091215
  Receipt Date: 20081119
  Transmission Date: 20100525
  Serious: No
  Sender: FDA-Public Use
  Company Number: A0757459A

PATIENT
  Age: 84 Year
  Sex: Male

DRUGS (8)
  1. AVODART [Suspect]
     Indication: BENIGN PROSTATIC HYPERPLASIA
     Dosage: .5MG PER DAY
     Route: 048
     Dates: start: 20080620
  2. PLAVIX [Concomitant]
  3. EFFEXOR [Concomitant]
  4. KEPPRA [Concomitant]
  5. BABY ASPIRIN [Concomitant]
  6. DIOVAN HCT [Concomitant]
  7. TOPROL-XL [Concomitant]
  8. CENTRUM [Concomitant]

REACTIONS (1)
  - DRUG INEFFECTIVE [None]
